FAERS Safety Report 18619874 (Version 7)
Quarter: 2024Q3

REPORT INFORMATION
  Report Type: Spontaneous
  Country: US (occurrence: US)
  Receive Date: 20201215
  Receipt Date: 20240702
  Transmission Date: 20241016
  Serious: No
  Sender: PFIZER
  Company Number: US-PFIZER INC-2020492785

PATIENT
  Age: 48 Year
  Sex: Female
  Weight: 73.48 kg

DRUGS (4)
  1. IBRANCE [Suspect]
     Active Substance: PALBOCICLIB
     Indication: Breast cancer female
     Dosage: 125 MG
     Dates: start: 20201127
  2. IBRANCE [Suspect]
     Active Substance: PALBOCICLIB
     Indication: Metastases to pleura
     Dosage: 125 MG, CYCLIC
     Dates: start: 20201204
  3. IBRANCE [Suspect]
     Active Substance: PALBOCICLIB
     Dosage: UNK, CYCLIC (TAKE FOR 21 DAYS REST FOR 7 DAYS)
  4. IBRANCE [Suspect]
     Active Substance: PALBOCICLIB
     Dosage: 100 MG, CYCLIC (TAKE 1 TABLET BY MOUTH DAILY (21 DAYS ON + 7 DAYS OFF)
     Route: 048

REACTIONS (4)
  - Cough [Recovered/Resolved]
  - Constipation [Unknown]
  - Fatigue [Unknown]
  - White blood cell count decreased [Unknown]

NARRATIVE: CASE EVENT DATE: 20201201
